FAERS Safety Report 8486198-7 (Version None)
Quarter: 2012Q3

REPORT INFORMATION
  Report Type: 
  Country: None (occurrence: None)
  Receive Date: 20120703
  Receipt Date: 20120624
  Transmission Date: 20120928
  Serious: Yes (Hospitalization)
  Sender: FDA-Public Use
  Company Number: US-ABBOTT-12P-163-0935581-00

PATIENT
  Age: 58 Year
  Sex: Female

DRUGS (14)
  1. REMERON [Concomitant]
     Indication: INSOMNIA
     Dosage: 15MG AT BEDTIME
  2. CHOLESTYRAMINE [Concomitant]
     Indication: PRODUCT USED FOR UNKNOWN INDICATION
  3. MONOPRIL [Concomitant]
     Indication: BLOOD PRESSURE
  4. SYNTHROID [Concomitant]
     Indication: PRODUCT USED FOR UNKNOWN INDICATION
     Dosage: QAM
  5. METOPROLOL SUCCINATE [Concomitant]
     Indication: BLOOD PRESSURE
  6. VIROPTIC EYE DROPS [Concomitant]
     Indication: PRODUCT USED FOR UNKNOWN INDICATION
  7. HUMIRA [Suspect]
     Indication: ANKYLOSING SPONDYLITIS
     Dates: start: 20120413, end: 20120606
  8. TRAMADOL HCL [Suspect]
     Indication: PRODUCT USED FOR UNKNOWN INDICATION
  9. NEUROPTIC EYE DROPS [Concomitant]
     Indication: EYE DISORDER
     Dosage: DAILY
  10. LUMIGAN EYE DROPS [Concomitant]
     Indication: PRODUCT USED FOR UNKNOWN INDICATION
  11. XANAX [Suspect]
     Indication: PRODUCT USED FOR UNKNOWN INDICATION
  12. INSULIN [Concomitant]
     Indication: TYPE 2 DIABETES MELLITUS
     Dosage: 24 UNITS QAM
  13. LOVASTATIN [Concomitant]
     Indication: BLOOD CHOLESTEROL
     Dosage: 40 MG QHS
  14. COMBINED EYE DROPS [Concomitant]
     Indication: PRODUCT USED FOR UNKNOWN INDICATION

REACTIONS (9)
  - FEELING ABNORMAL [None]
  - COUGH [None]
  - UPPER RESPIRATORY TRACT INFECTION [None]
  - DYSARTHRIA [None]
  - INFLUENZA [None]
  - UNEVALUABLE EVENT [None]
  - OROPHARYNGEAL PAIN [None]
  - SINUS HEADACHE [None]
  - NASOPHARYNGITIS [None]
